FAERS Safety Report 23869316 (Version 2)
Quarter: 2025Q2

REPORT INFORMATION
  Report Type: Spontaneous
  Country: CN (occurrence: CN)
  Receive Date: 20240517
  Receipt Date: 20250608
  Transmission Date: 20250717
  Serious: Yes (Hospitalization)
  Sender: COHERUS
  Company Number: CN-SHANGHAI JUNSHI BIOSCIENCES CO., LTD.-CN2024010003

PATIENT

DRUGS (5)
  1. TORIPALIMAB [Suspect]
     Active Substance: TORIPALIMAB
     Indication: Nasopharyngeal cancer
     Dosage: 3 BOTTLES/TIME, EVERY 21 DAYS, TOTALLY ADMINISTERED 27 TIMES
     Route: 041
     Dates: start: 20220702, end: 20240220
  2. GEMCITABINE [Concomitant]
     Active Substance: GEMCITABINE
     Indication: Nasopharyngeal cancer
     Route: 041
     Dates: start: 20220702
  3. GEMCITABINE [Concomitant]
     Active Substance: GEMCITABINE
     Indication: Nasopharyngeal cancer stage III
  4. CAPECITABINE [Concomitant]
     Active Substance: CAPECITABINE
     Indication: Nasopharyngeal cancer
     Dates: start: 20220702
  5. CAPECITABINE [Concomitant]
     Active Substance: CAPECITABINE
     Indication: Nasopharyngeal cancer stage III

REACTIONS (1)
  - Immune-mediated cystitis [Recovered/Resolved]

NARRATIVE: CASE EVENT DATE: 20240316
